FAERS Safety Report 7151075-0 (Version None)
Quarter: 2010Q4

REPORT INFORMATION
  Report Type: 
  Country: None (occurrence: None)
  Receive Date: 20101206
  Receipt Date: 20101206
  Transmission Date: 20110411
  Serious: Yes (Hospitalization)
  Sender: FDA-Public Use
  Company Number: None

PATIENT
  Age: 75 Year
  Sex: Male
  Weight: 73 kg

DRUGS (2)
  1. CEFPODOXIME PROXETIL [Suspect]
     Indication: URINARY TRACT INFECTION
     Dosage: 200 MG BID PO
     Route: 048
     Dates: start: 20100924, end: 20101002
  2. CIPROFLOXACIN [Suspect]
     Indication: URINARY TRACT INFECTION
     Dosage: 500 MG EVERY DAY PO
     Route: 048
     Dates: start: 20100930, end: 20101007

REACTIONS (2)
  - CLOSTRIDIAL INFECTION [None]
  - HAEMATOCHEZIA [None]
